FAERS Safety Report 20775932 (Version 1)
Quarter: 2022Q2

REPORT INFORMATION
  Report Type: Report from Study
  Country: CA (occurrence: CA)
  Receive Date: 20220502
  Receipt Date: 20220502
  Transmission Date: 20220721
  Serious: Yes (Death)
  Sender: FDA-Public Use
  Company Number: CA-PFIZER INC-202200635240

PATIENT
  Age: 46 Year
  Sex: Male
  Weight: 121.5 kg

DRUGS (3)
  1. IRINOTECAN HYDROCHLORIDE [Suspect]
     Active Substance: IRINOTECAN HYDROCHLORIDE
     Indication: Oesophageal adenocarcinoma
     Dosage: 160 MG/M2 (390 MG), OVER: 60-90 MINUTES ON A 28 DAY CYCLE
     Route: 042
     Dates: start: 20220309
  2. OXALIPLATIN [Suspect]
     Active Substance: OXALIPLATIN
     Indication: Oesophageal adenocarcinoma
     Dosage: 100MG/M2 (245 MG), OVER 2 HOURS ON A 28 DAY CYCLE
     Route: 042
     Dates: start: 20220309
  3. TIPIRACIL HYDROCHLORIDE\TRIFLURIDINE [Suspect]
     Active Substance: TIPIRACIL HYDROCHLORIDE\TRIFLURIDINE
     Indication: Oesophageal adenocarcinoma
     Dosage: 25 MG/M2 (60MG), BID FOR 10 DAYS (DAYS 1-5 AND DAYS 8-12)
     Route: 048
     Dates: start: 20220309

REACTIONS (1)
  - Respiratory arrest [Fatal]

NARRATIVE: CASE EVENT DATE: 20220328
